FAERS Safety Report 20547449 (Version 1)
Quarter: 2022Q1

REPORT INFORMATION
  Report Type: Spontaneous
  Country: US (occurrence: US)
  Receive Date: 20220303
  Receipt Date: 20220303
  Transmission Date: 20220423
  Serious: No
  Sender: FDA-Public Use
  Company Number: US-INCYTE CORPORATION-2022IN001876

PATIENT

DRUGS (3)
  1. JAKAFI [Suspect]
     Active Substance: RUXOLITINIB
     Indication: Acute myeloid leukaemia (in remission)
     Dosage: 5 MILLIGRAM, BID
     Route: 048
     Dates: start: 20220212
  2. JAKAFI [Suspect]
     Active Substance: RUXOLITINIB
     Indication: Bone marrow transplant
  3. JAKAFI [Suspect]
     Active Substance: RUXOLITINIB
     Indication: Stem cell transplant

REACTIONS (4)
  - Asthenia [Unknown]
  - Off label use [Unknown]
  - Mental disorder [Unknown]
  - General physical condition abnormal [Unknown]

NARRATIVE: CASE EVENT DATE: 20220212
